FAERS Safety Report 9177599 (Version 1)
Quarter: 2013Q1

REPORT INFORMATION
  Report Type: Spontaneous
  Country: CO (occurrence: CO)
  Receive Date: 20130321
  Receipt Date: 20130321
  Transmission Date: 20140127
  Serious: No
  Sender: FDA-Public Use
  Company Number: CO-UCBSA-081064

PATIENT
  Age: 73 Year
  Sex: Female

DRUGS (14)
  1. NEUPRO [Suspect]
     Indication: PARKINSON^S DISEASE
     Dosage: 8 MG
     Route: 062
     Dates: end: 201206
  2. NEUPRO [Suspect]
     Indication: PARKINSON^S DISEASE
     Dosage: 6 MG
     Route: 062
     Dates: start: 20120615, end: 20130227
  3. MADOPAR [Concomitant]
     Dosage: 250 MG
  4. BROMOCRIPTINA [Concomitant]
     Dosage: 1 TAB C/8 HOURS
  5. AXATINOL [Concomitant]
     Dosage: 20 MG
  6. VALTAN [Concomitant]
     Dosage: 80 MG
  7. MOXAR [Concomitant]
     Dosage: 5 MG
  8. SERTRALINA [Concomitant]
     Dosage: 50 MG
  9. VITAMIN E [Concomitant]
  10. MIDAZOLAM [Concomitant]
     Dosage: 7.5 MG
  11. AVIPIPRAZOL [Concomitant]
  12. DESLOTADINE [Concomitant]
     Dosage: 5 MG
  13. CORTISOL [Concomitant]
  14. NISTATINA [Concomitant]

REACTIONS (1)
  - Application site burn [Unknown]
